FAERS Safety Report 18745234 (Version 2)
Quarter: 2022Q1

REPORT INFORMATION
  Report Type: Spontaneous
  Country: US (occurrence: US)
  Receive Date: 20210115
  Receipt Date: 20220311
  Transmission Date: 20220423
  Serious: Yes (Other)
  Sender: FDA-Public Use
  Company Number: US-GLAXOSMITHKLINE-US2020GSK258834

PATIENT
  Sex: Female

DRUGS (15)
  1. RANITIDINE [Suspect]
     Active Substance: RANITIDINE
     Indication: Gastrooesophageal reflux disease
     Dosage: 150 MG PRESCRIPTION
     Route: 065
     Dates: start: 201701, end: 201901
  2. RANITIDINE [Suspect]
     Active Substance: RANITIDINE
     Dosage: UNK
  3. ZANTAC [Suspect]
     Active Substance: RANITIDINE HYDROCHLORIDE
     Indication: Gastrooesophageal reflux disease
     Dosage: 75 MG OVER THE COUNTER
     Route: 065
     Dates: start: 201601, end: 201701
  4. ZANTAC [Suspect]
     Active Substance: RANITIDINE HYDROCHLORIDE
     Dosage: 150 MG, QD
     Route: 065
     Dates: start: 201601, end: 201701
  5. RANITIDINE [Suspect]
     Active Substance: RANITIDINE
     Indication: Gastrooesophageal reflux disease
     Dosage: 75 MG OVER THE COUNTER
     Route: 065
     Dates: start: 201601, end: 201701
  6. RANITIDINE [Suspect]
     Active Substance: RANITIDINE
     Dosage: 150 MG, QD
     Route: 065
     Dates: start: 201601, end: 201701
  7. ZANTAC [Concomitant]
     Active Substance: RANITIDINE HYDROCHLORIDE
     Indication: Gastrooesophageal reflux disease
     Dosage: UNKNOWN AT THIS TIME BOTH
     Route: 065
     Dates: start: 201701, end: 201901
  8. ZANTAC [Concomitant]
     Active Substance: RANITIDINE HYDROCHLORIDE
     Dosage: UNKNOWN AT THIS TIME BOTH
     Route: 065
     Dates: start: 201701, end: 201901
  9. ZANTAC [Concomitant]
     Active Substance: RANITIDINE HYDROCHLORIDE
     Dosage: UNK
  10. RANITIDINE [Suspect]
     Active Substance: RANITIDINE
     Indication: Gastrooesophageal reflux disease
     Dosage: 150 MG PRESCRIPTION
     Route: 065
     Dates: start: 201701, end: 201901
  11. RANITIDINE [Suspect]
     Active Substance: RANITIDINE
     Dosage: UNK
  12. RANITIDINE [Suspect]
     Active Substance: RANITIDINE
     Dosage: UNK
  13. RANITIDINE HYDROCHLORIDE [Suspect]
     Active Substance: RANITIDINE HYDROCHLORIDE
     Indication: Gastrooesophageal reflux disease
     Dosage: GM57 OVER THE COUNTER
     Route: 065
     Dates: start: 201701, end: 201901
  14. RANITIDINE HYDROCHLORIDE [Suspect]
     Active Substance: RANITIDINE HYDROCHLORIDE
     Dosage: 150 UNK, QD
     Route: 065
     Dates: start: 201701, end: 201901
  15. RANITIDINE HYDROCHLORIDE [Suspect]
     Active Substance: RANITIDINE HYDROCHLORIDE
     Dosage: UNK

REACTIONS (1)
  - Breast cancer [Unknown]
